FAERS Safety Report 14630997 (Version 1)
Quarter: 2018Q1

REPORT INFORMATION
  Report Type: Spontaneous
  Country: US (occurrence: US)
  Receive Date: 20180313
  Receipt Date: 20180313
  Transmission Date: 20180509
  Serious: No
  Sender: FDA-Public Use
  Company Number: US-PERRIGO-18US001185

PATIENT
  Age: 60 Year
  Sex: Male
  Weight: 86.62 kg

DRUGS (2)
  1. TESTOSTERONE. [Suspect]
     Active Substance: TESTOSTERONE
     Indication: BLOOD TESTOSTERONE DECREASED
     Dosage: 120 MG, UNKNOWN
     Route: 061
     Dates: start: 201706
  2. LOVASTATIN. [Concomitant]
     Active Substance: LOVASTATIN
     Indication: BLOOD CHOLESTEROL INCREASED
     Dosage: UNKNOWN, UNKNOWN
     Route: 065

REACTIONS (2)
  - Prescribed overdose [Not Recovered/Not Resolved]
  - Application site discolouration [Unknown]

NARRATIVE: CASE EVENT DATE: 201706
